FAERS Safety Report 4320748-7 (Version None)
Quarter: 2004Q1

REPORT INFORMATION
  Report Type: 
  Country: None (occurrence: None)
  Receive Date: 20040322
  Receipt Date: 20040311
  Transmission Date: 20041129
  Serious: Yes (Other)
  Sender: FDA-Public Use
  Company Number: FR-ROCHE-361584

PATIENT
  Sex: Female

DRUGS (2)
  1. PEGASYS [Suspect]
     Indication: HEPATITIS C
     Route: 065
  2. COPEGUS [Suspect]
     Indication: HEPATITIS C
     Route: 048

REACTIONS (5)
  - ACUTE PSYCHOSIS [None]
  - BRIEF PSYCHOTIC DISORDER WITH MARKED STRESSORS [None]
  - CEREBRAL ATROPHY [None]
  - FUNGAL INFECTION [None]
  - LIPOMA [None]
